FAERS Safety Report 25727290 (Version 1)
Quarter: 2025Q3

REPORT INFORMATION
  Report Type: Spontaneous
  Country: US (occurrence: US)
  Receive Date: 20250826
  Receipt Date: 20250826
  Transmission Date: 20251020
  Serious: No
  Sender: SANOFI AVENTIS
  Company Number: US-SA-2025SA053514

PATIENT
  Age: 63 Year
  Sex: Female

DRUGS (13)
  1. DUPIXENT [Suspect]
     Active Substance: DUPILUMAB
     Indication: Dermatitis atopic
     Dosage: 300 MG, QOW
     Route: 058
     Dates: start: 20230205
  2. DOXEPIN HYDROCHLORIDE [Concomitant]
     Active Substance: DOXEPIN HYDROCHLORIDE
  3. LOVASTATIN [Concomitant]
     Active Substance: LOVASTATIN
  4. MAGNESIUM GLYCINATE [Concomitant]
     Active Substance: MAGNESIUM GLYCINATE
  5. METHOTREXATE [Concomitant]
     Active Substance: METHOTREXATE
  6. METOPROLOL [Concomitant]
     Active Substance: METOPROLOL
  7. PHENOBARBITAL [Concomitant]
     Active Substance: PHENOBARBITAL
  8. PHENOBARBITAL [Concomitant]
     Active Substance: PHENOBARBITAL
  9. PREDNISONE [Concomitant]
     Active Substance: PREDNISONE
  10. SIMLANDI [Concomitant]
     Active Substance: ADALIMUMAB-RYVK
  11. VITAMIN B12 [Concomitant]
     Active Substance: CYANOCOBALAMIN
  12. VITAMIN D3 [Concomitant]
     Active Substance: CHOLECALCIFEROL
  13. PRAVASTATIN [Concomitant]
     Active Substance: PRAVASTATIN

REACTIONS (3)
  - Pain [Recovering/Resolving]
  - Loss of personal independence in daily activities [Recovered/Resolved]
  - Drug ineffective [Unknown]
